FAERS Safety Report 25761373 (Version 2)
Quarter: 2025Q3

REPORT INFORMATION
  Report Type: Spontaneous
  Country: US (occurrence: US)
  Receive Date: 20250904
  Receipt Date: 20250908
  Transmission Date: 20251021
  Serious: Yes (Other)
  Sender: PFIZER
  Company Number: US-PFIZER INC-202500071363

PATIENT
  Age: 80 Year
  Sex: Male
  Weight: 51.429 kg

DRUGS (3)
  1. BOSULIF [Suspect]
     Active Substance: BOSUTINIB MONOHYDRATE
     Indication: Chemotherapy
     Dosage: 400 MG, DAILY (100 MG TAKE 4 DAILY)
     Route: 048
     Dates: start: 20250303
  2. BOSULIF [Suspect]
     Active Substance: BOSUTINIB MONOHYDRATE
     Indication: Chronic myeloid leukaemia
  3. BOSULIF [Suspect]
     Active Substance: BOSUTINIB MONOHYDRATE
     Indication: Philadelphia chromosome test

REACTIONS (2)
  - Neuropathy peripheral [Unknown]
  - Disease recurrence [Unknown]

NARRATIVE: CASE EVENT DATE: 20250101
